FAERS Safety Report 5817310-3 (Version None)
Quarter: 2008Q3

REPORT INFORMATION
  Report Type: 
  Country: None (occurrence: None)
  Receive Date: 20080722
  Receipt Date: 20080716
  Transmission Date: 20090109
  Serious: Yes (Hospitalization)
  Sender: FDA-Public Use
  Company Number: B0529959A

PATIENT
  Age: 40 Year
  Sex: Male

DRUGS (7)
  1. EPIVIR [Suspect]
     Indication: HIV INFECTION
     Dosage: 300MG PER DAY
     Route: 048
     Dates: start: 20080408
  2. VINBLASTINE SULFATE [Suspect]
     Indication: HODGKIN'S DISEASE
     Dosage: 9.72MG PER DAY
     Route: 042
     Dates: start: 20080409, end: 20080409
  3. DOXORUBICIN HCL [Suspect]
     Indication: HODGKIN'S DISEASE
     Dosage: 30MG PER DAY
     Route: 042
     Dates: start: 20080409, end: 20080409
  4. BLEOMYCIN SULFATE [Suspect]
     Indication: HODGKIN'S DISEASE
     Dosage: 16MG PER DAY
     Route: 042
     Dates: start: 20080409, end: 20080409
  5. RITONAVIR [Suspect]
     Indication: HIV INFECTION
     Dosage: 100MG PER DAY
     Route: 048
     Dates: start: 20071113
  6. ATAZANAVIR [Concomitant]
     Indication: HIV INFECTION
     Dosage: 300MG PER DAY
     Route: 048
     Dates: start: 20071113
  7. VIREAD [Concomitant]
     Indication: HIV INFECTION
     Dosage: 245MG PER DAY
     Route: 048
     Dates: start: 20070408

REACTIONS (1)
  - ILEUS PARALYTIC [None]
